FAERS Safety Report 15222951 (Version 2)
Quarter: 2018Q3

REPORT INFORMATION
  Report Type: Spontaneous
  Country: US (occurrence: US)
  Receive Date: 20180731
  Receipt Date: 20180810
  Transmission Date: 20181010
  Serious: Yes (Life-Threatening, Other)
  Sender: FDA-Public Use
  Company Number: US-FRESENIUS KABI-FK201808276

PATIENT
  Age: 71 Year
  Sex: Male
  Weight: 117.9 kg

DRUGS (6)
  1. HYDRALAZINE [Concomitant]
     Active Substance: HYDRALAZINE HYDROCHLORIDE
     Indication: HYPERTENSION
     Route: 065
  2. LIDOCAINE. [Concomitant]
     Active Substance: LIDOCAINE
     Indication: ANAESTHESIA
     Route: 048
     Dates: start: 20180618, end: 20180618
  3. PANTOPRAZOLE [Concomitant]
     Active Substance: PANTOPRAZOLE
     Indication: BARRETT^S OESOPHAGUS
     Route: 065
  4. MELOXICAM. [Concomitant]
     Active Substance: MELOXICAM
     Indication: PHLEBITIS
  5. MELOXICAM. [Concomitant]
     Active Substance: MELOXICAM
     Indication: THROMBOSIS
     Route: 065
  6. DIPRIVAN [Suspect]
     Active Substance: PROPOFOL
     Indication: ANAESTHESIA
     Dosage: PUSHED SLOWLY UNTIL PATIENT WAS SEDATED
     Route: 042
     Dates: start: 20180618, end: 20180618

REACTIONS (4)
  - Product communication issue [Recovered/Resolved]
  - Contraindicated product administered [Unknown]
  - Apnoea [Recovered/Resolved]
  - Hypoventilation [Recovered/Resolved]

NARRATIVE: CASE EVENT DATE: 20180618
